FAERS Safety Report 14974874 (Version 1)
Quarter: 2018Q2

REPORT INFORMATION
  Report Type: Spontaneous
  Country: US (occurrence: US)
  Receive Date: 20180605
  Receipt Date: 20180605
  Transmission Date: 20180711
  Serious: No
  Sender: FDA-Public Use
  Company Number: US-ASTRAZENECA-2018SE69365

PATIENT
  Sex: Female
  Weight: 112.5 kg

DRUGS (6)
  1. NEURONTIN [Concomitant]
     Active Substance: GABAPENTIN
  2. BYDUREON [Suspect]
     Active Substance: EXENATIDE
     Indication: TYPE 2 DIABETES MELLITUS
     Route: 058
     Dates: start: 20180407
  3. SERTRALINE [Concomitant]
     Active Substance: SERTRALINE HYDROCHLORIDE
     Indication: DEPRESSION
  4. PROTONIX [Concomitant]
     Active Substance: PANTOPRAZOLE SODIUM
  5. ATORVASTATIN [Concomitant]
     Active Substance: ATORVASTATIN
  6. FARXIGA [Suspect]
     Active Substance: DAPAGLIFLOZIN PROPANEDIOL
     Indication: TYPE 2 DIABETES MELLITUS
     Dosage: EVERY DAY
     Route: 048

REACTIONS (4)
  - Gait disturbance [Not Recovered/Not Resolved]
  - Injection site pain [Not Recovered/Not Resolved]
  - Drug dose omission [Unknown]
  - Injection site nodule [Not Recovered/Not Resolved]
